FAERS Safety Report 18446628 (Version 1)
Quarter: 2020Q4

REPORT INFORMATION
  Report Type: Spontaneous
  Country: US (occurrence: US)
  Receive Date: 20201030
  Receipt Date: 20201030
  Transmission Date: 20210114
  Serious: No
  Sender: FDA-Public Use
  Company Number: US-NOVOPROD-709459

PATIENT
  Sex: Female

DRUGS (1)
  1. TRESIBA [Suspect]
     Active Substance: INSULIN DEGLUDEC
     Indication: TYPE 1 DIABETES MELLITUS
     Dosage: 14 UNITS ON AVERAGE
     Route: 058

REACTIONS (6)
  - Urinary tract infection [Unknown]
  - Illness [Unknown]
  - Blood glucose increased [Unknown]
  - Influenza [Unknown]
  - Product quality issue [Unknown]
  - Nasopharyngitis [Unknown]
